FAERS Safety Report 24623093 (Version 1)
Quarter: 2024Q4

REPORT INFORMATION
  Report Type: Spontaneous
  Country: CN (occurrence: CN)
  Receive Date: 20241115
  Receipt Date: 20241115
  Transmission Date: 20250115
  Serious: Yes (Hospitalization)
  Sender: Haleon PLC
  Company Number: CN-HALEON-2208544

PATIENT
  Age: 38 Year
  Sex: Male

DRUGS (2)
  1. VOLTAREN [Suspect]
     Active Substance: DICLOFENAC SODIUM
     Indication: Arthritis
  2. SULFASALAZINE [Suspect]
     Active Substance: SULFASALAZINE
     Indication: Arthritis

REACTIONS (15)
  - Atypical Stevens-Johnson syndrome [Recovered/Resolved]
  - Oropharyngeal pain [Recovered/Resolved]
  - Dysphagia [Recovered/Resolved]
  - Lacrimation increased [Recovered/Resolved]
  - Lip ulceration [Recovered/Resolved]
  - Gingival ulceration [Recovered/Resolved]
  - Palatal ulcer [Recovered/Resolved]
  - Tongue ulceration [Recovered/Resolved]
  - Tonsillar ulcer [Recovered/Resolved]
  - Conjunctival hyperaemia [Recovered/Resolved]
  - Pharyngeal ulceration [Recovered/Resolved]
  - Laryngeal ulceration [Recovered/Resolved]
  - Lip haemorrhage [Recovered/Resolved]
  - Nasal dryness [Recovered/Resolved]
  - Dry eye [Recovered/Resolved]
